FAERS Safety Report 18699549 (Version 1)
Quarter: 2021Q1

REPORT INFORMATION
  Report Type: Spontaneous
  Country: US (occurrence: US)
  Receive Date: 20210104
  Receipt Date: 20210104
  Transmission Date: 20210419
  Serious: Yes (Congenital Anomaly)
  Sender: FDA-Public Use
  Company Number: US-ANIPHARMA-2020-US-025442

PATIENT
  Sex: Female

DRUGS (1)
  1. OXCARBAZEPINE (NON?SPECIFIC) [Suspect]
     Active Substance: OXCARBAZEPINE
     Indication: PRODUCT USED FOR UNKNOWN INDICATION
     Route: 015

REACTIONS (7)
  - Syndactyly [Not Recovered/Not Resolved]
  - Aplasia [Not Recovered/Not Resolved]
  - Dandy-Walker syndrome [Not Recovered/Not Resolved]
  - Foetal exposure during pregnancy [Recovered/Resolved]
  - Atrial septal defect [Not Recovered/Not Resolved]
  - Joubert syndrome [Not Recovered/Not Resolved]
  - Polydactyly [Not Recovered/Not Resolved]
